FAERS Safety Report 8760834 (Version 2)
Quarter: 2012Q4

REPORT INFORMATION
  Report Type: 
  Country: US (occurrence: US)
  Receive Date: 20120829
  Receipt Date: 20121214
  Transmission Date: 20130627
  Serious: Yes (Hospitalization)
  Sender: FDA-Public Use
  Company Number: US-ELI_LILLY_AND_COMPANY-US201208006977

PATIENT
  Sex: Male
  Weight: 95.24 kg

DRUGS (7)
  1. HUMULIN 30% REGULAR, 70% NPH [Suspect]
     Indication: DIABETES MELLITUS
     Dosage: 80 u, each morning
     Dates: start: 201204, end: 20120817
  2. HUMULIN 30% REGULAR, 70% NPH [Suspect]
     Dosage: 50 u, each evening
     Dates: start: 201204, end: 20120817
  3. HUMULIN 30% REGULAR, 70% NPH [Suspect]
     Dosage: 30 u, each morning
     Dates: start: 20120822
  4. HUMULIN 30% REGULAR, 70% NPH [Suspect]
     Dosage: 15 u, each morning
     Route: 058
     Dates: start: 20120518
  5. HUMULIN 30% REGULAR, 70% NPH [Suspect]
     Dosage: 30 u, each evening
     Route: 058
     Dates: start: 20120518
  6. HUMULIN 30% REGULAR, 70% NPH [Suspect]
     Indication: DIABETES MELLITUS
     Dosage: UNK, unknown
     Dates: start: 2003, end: 201204
  7. HUMULIN 30% REGULAR, 70% NPH [Suspect]
     Dosage: UNK
     Dates: start: 20120817, end: 20120821

REACTIONS (9)
  - Chronic obstructive pulmonary disease [Recovered/Resolved]
  - Angina pectoris [Recovered/Resolved]
  - Dehydration [Recovered/Resolved]
  - Cardiac failure chronic [Recovered/Resolved]
  - Atrial fibrillation [Recovered/Resolved]
  - Blood glucose increased [Recovered/Resolved]
  - Blood glucose decreased [Recovered/Resolved]
  - Feeling abnormal [Unknown]
  - Incorrect dose administered [Unknown]
